FAERS Safety Report 4556526-3 (Version None)
Quarter: 2005Q1

REPORT INFORMATION
  Report Type: 
  Country: None (occurrence: None)
  Receive Date: 20050114
  Receipt Date: 20050104
  Transmission Date: 20050727
  Serious: Yes (Other)
  Sender: FDA-Public Use
  Company Number: 200510045BCC

PATIENT
  Age: 69 Year
  Sex: Female
  Weight: 72.5755 kg

DRUGS (3)
  1. ALKA-SELTZER PLUS COLD (EFFERVESCENT) [Suspect]
     Indication: NASOPHARYNGITIS
     Dosage: 500/10/4 MG, QD, ORAL
     Route: 048
     Dates: start: 20041211, end: 20041212
  2. PRILOSEC [Concomitant]
  3. STARLIX [Concomitant]

REACTIONS (3)
  - COLITIS ULCERATIVE [None]
  - CONDITION AGGRAVATED [None]
  - RECTAL HAEMORRHAGE [None]
